FAERS Safety Report 15244673 (Version 1)
Quarter: 2018Q3

REPORT INFORMATION
  Report Type: Report from Study
  Country: AR (occurrence: AR)
  Receive Date: 20180806
  Receipt Date: 20180806
  Transmission Date: 20181010
  Serious: Yes (Other)
  Sender: FDA-Public Use
  Company Number: AR-MYLANLABS-2018M1058388

PATIENT
  Age: 67 Year

DRUGS (1)
  1. CISPLATIN. [Suspect]
     Active Substance: CISPLATIN
     Indication: SQUAMOUS CELL CARCINOMA OF THE CERVIX
     Dosage: TWO CYCLES OF CISPLATIN 100 MG/M2 FOR FOUR DAYS, REPEATED EVERY 21 DAYS
     Route: 065

REACTIONS (1)
  - Drug resistance [Unknown]
